FAERS Safety Report 8200856-0 (Version None)
Quarter: 2012Q1

REPORT INFORMATION
  Report Type: 
  Country: None (occurrence: None)
  Receive Date: 20120312
  Receipt Date: 20110404
  Transmission Date: 20120608
  Serious: No
  Sender: FDA-Public Use
  Company Number: US-ABBOTT-11P-163-0716999-00

PATIENT
  Sex: Female
  Weight: 87.168 kg

DRUGS (3)
  1. LUPRON DEPOT [Suspect]
     Indication: UTERINE LEIOMYOMA
     Route: 050
     Dates: start: 20110331
  2. BIRTH CONTROL [Concomitant]
     Indication: VAGINAL HAEMORRHAGE
     Dates: end: 20110301
  3. LUPRON DEPOT [Suspect]
     Indication: HAEMORRHAGE

REACTIONS (1)
  - PARAESTHESIA [None]
